FAERS Safety Report 4595394-0 (Version None)
Quarter: 2005Q1

REPORT INFORMATION
  Report Type: 
  Country: None (occurrence: None)
  Receive Date: 20050224
  Receipt Date: 20050208
  Transmission Date: 20050727
  Serious: Yes (Hospitalization)
  Sender: FDA-Public Use
  Company Number: USA050290180

PATIENT
  Age: 63 Year
  Sex: Male

DRUGS (2)
  1. INSULIN [Suspect]
     Indication: DIABETES MELLITUS
     Dates: start: 19850101, end: 20000101
  2. HUMALOG MIX 75/25 [Suspect]
     Indication: DIABETES MELLITUS
     Dates: start: 20000101

REACTIONS (7)
  - BLOOD GLUCOSE INCREASED [None]
  - HYPOAESTHESIA [None]
  - INFLAMMATION [None]
  - NECK INJURY [None]
  - NECK PAIN [None]
  - PHARMACEUTICAL PRODUCT COMPLAINT [None]
  - SPONDYLITIS [None]
